FAERS Safety Report 5176495-5 (Version None)
Quarter: 2006Q4

REPORT INFORMATION
  Report Type: 
  Country: None (occurrence: None)
  Receive Date: 20061207
  Receipt Date: 20061128
  Transmission Date: 20070319
  Serious: Yes (Hospitalization)
  Sender: FDA-Public Use
  Company Number: 310020M06FRA

PATIENT
  Age: 38 Year
  Sex: Female
  Weight: 65 kg

DRUGS (4)
  1. GONAL-F [Suspect]
     Indication: IN VITRO FERTILISATION
     Dosage: SUBCUTANEOUS
     Route: 058
     Dates: start: 20050701, end: 20050710
  2. ENANTONE  (LEUPRORELIN ACETATE) [Suspect]
     Dosage: 0.5 DOSAGE FORMS, SUBCUTANEOUS
     Route: 058
  3. GONADOTROPHINE CHORIONIQUE ENDO  (CHORIONIC GONADOTROPHIN) [Suspect]
     Dosage: 10
     Dates: start: 20050711
  4. PROGESTERONE [Concomitant]

REACTIONS (5)
  - ASCITES [None]
  - DRUG EXPOSURE BEFORE PREGNANCY [None]
  - PLEURAL EFFUSION [None]
  - PREMATURE LABOUR [None]
  - TWIN PREGNANCY [None]
